FAERS Safety Report 18010038 (Version 2)
Quarter: 2020Q3

REPORT INFORMATION
  Report Type: Spontaneous
  Country: US (occurrence: US)
  Receive Date: 20200710
  Receipt Date: 20200809
  Transmission Date: 20201103
  Serious: Yes (Life-Threatening)
  Sender: FDA-Public Use
  Company Number: NVSC2020US188964

PATIENT
  Age: 65 Year
  Sex: Male
  Weight: 98.4 kg

DRUGS (1)
  1. FILGRASTIM [Suspect]
     Active Substance: FILGRASTIM
     Indication: NEUTROPENIA
     Dosage: 480 MCG
     Route: 058

REACTIONS (2)
  - Neutrophil count increased [Unknown]
  - Acute respiratory failure [Unknown]
